FAERS Safety Report 6963818-7 (Version None)
Quarter: 2010Q3

REPORT INFORMATION
  Report Type: 
  Country: None (occurrence: None)
  Receive Date: 20100830
  Receipt Date: 20100820
  Transmission Date: 20110219
  Serious: Yes (Hospitalization, Other)
  Sender: FDA-Public Use
  Company Number: JHP201000241

PATIENT
  Sex: Male

DRUGS (3)
  1. DANTRIUM [Suspect]
     Indication: MUSCULOSKELETAL STIFFNESS
     Dosage: 100 MG, QID, ORAL
     Route: 048
  2. BACLOFEN [Concomitant]
  3. TIZANIDINE HCL [Concomitant]

REACTIONS (3)
  - HYPERHIDROSIS [None]
  - RESPIRATORY RATE INCREASED [None]
  - TACHYCARDIA [None]
